FAERS Safety Report 9804525 (Version 1)
Quarter: 2014Q1

REPORT INFORMATION
  Report Type: Spontaneous
  Country: US (occurrence: US)
  Receive Date: 20140108
  Receipt Date: 20140108
  Transmission Date: 20141002
  Serious: Yes (Hospitalization)
  Sender: FDA-Public Use
  Company Number: US-VERTEX PHARMACEUTICALS INC-2014-000044

PATIENT
  Age: 61 Year
  Sex: Male
  Weight: 81.63 kg

DRUGS (8)
  1. INCIVEK [Suspect]
     Indication: HEPATITIS C
     Dosage: 2 DF, TID
     Route: 048
     Dates: start: 20131025
  2. INCIVEK [Suspect]
     Dosage: 3 TABS BID
     Route: 048
     Dates: start: 201312
  3. RIBAVIRIN [Suspect]
     Indication: HEPATITIS C
     Dosage: 3 TABS Q AM. 2 TABS Q PM
     Route: 048
     Dates: start: 20131025
  4. RIBAVIRIN [Suspect]
     Dosage: 2 TABS Q AM AND 1 TAB Q PM
     Route: 048
     Dates: start: 201312
  5. PEGASYS [Suspect]
     Indication: HEPATITIS C
     Dosage: 180 ?G, QW
     Route: 058
     Dates: start: 20131025
  6. PEGASYS [Suspect]
     Dosage: 135 ?G, QW
     Route: 058
  7. PEGASYS [Suspect]
     Dosage: 90 ?G, QW
     Route: 058
  8. OTHER THERAPEUTIC PRODUCTS [Concomitant]
     Indication: BLOOD PRESSURE INCREASED

REACTIONS (22)
  - Platelet count decreased [Not Recovered/Not Resolved]
  - Eye pain [Recovered/Resolved]
  - Pain [Not Recovered/Not Resolved]
  - Arthralgia [Not Recovered/Not Resolved]
  - Back pain [Not Recovered/Not Resolved]
  - Headache [Not Recovered/Not Resolved]
  - Blood pressure [Not Recovered/Not Resolved]
  - Malaise [Not Recovered/Not Resolved]
  - Sleep disorder [Not Recovered/Not Resolved]
  - Abdominal discomfort [Not Recovered/Not Resolved]
  - Burning sensation [Recovered/Resolved]
  - Appetite disorder [Not Recovered/Not Resolved]
  - Local swelling [Not Recovered/Not Resolved]
  - Paraesthesia [Not Recovered/Not Resolved]
  - Hypoaesthesia [Not Recovered/Not Resolved]
  - Eye colour change [Recovered/Resolved]
  - Conjunctivitis [Recovered/Resolved]
  - Blood disorder [Not Recovered/Not Resolved]
  - Fatigue [Not Recovered/Not Resolved]
  - Dysgeusia [Not Recovered/Not Resolved]
  - Nausea [Not Recovered/Not Resolved]
  - Pruritus [Recovered/Resolved]
